FAERS Safety Report 8065248-6 (Version None)
Quarter: 2012Q1

REPORT INFORMATION
  Report Type: 
  Country: None (occurrence: None)
  Receive Date: 20120124
  Receipt Date: 20120119
  Transmission Date: 20120608
  Serious: Yes (Death)
  Sender: FDA-Public Use
  Company Number: AU-JNJFOC-20120107040

PATIENT
  Sex: Male

DRUGS (1)
  1. DURAGESIC-100 [Suspect]
     Indication: COMPLETED SUICIDE
     Route: 065

REACTIONS (2)
  - INTENTIONAL DRUG MISUSE [None]
  - DRUG DIVERSION [None]
